FAERS Safety Report 9350273 (Version 1)
Quarter: 2013Q2

REPORT INFORMATION
  Report Type: Spontaneous
  Country: FR (occurrence: FR)
  Receive Date: 20130617
  Receipt Date: 20130617
  Transmission Date: 20140414
  Serious: Yes (Hospitalization)
  Sender: FDA-Public Use
  Company Number: FR-009507513-1306FRA003475

PATIENT
  Age: 44 Year
  Sex: Male

DRUGS (4)
  1. TIENAM 500MG/500MG, POUDRE POUR PERFUSION [Suspect]
     Dosage: UNK
     Route: 042
     Dates: start: 20110727
  2. KIDROLASE [Suspect]
     Indication: B-CELL TYPE ACUTE LEUKAEMIA
     Dosage: UNK
     Route: 042
     Dates: start: 20110708, end: 201110
  3. AMIKACIN [Suspect]
     Indication: ANTIBIOTIC THERAPY
     Dosage: UNK
     Dates: start: 20110127
  4. ZOVIRAX [Suspect]
     Indication: ORAL HERPES
     Dosage: UNK
     Dates: start: 20110727

REACTIONS (2)
  - Hepatocellular injury [Recovered/Resolved]
  - Cholestatic pruritus [Recovered/Resolved]
